FAERS Safety Report 6463298-4 (Version None)
Quarter: 2009Q4

REPORT INFORMATION
  Report Type: 
  Country: None (occurrence: None)
  Receive Date: 20091130
  Receipt Date: 20090630
  Transmission Date: 20100525
  Serious: Yes (Other)
  Sender: FDA-Public Use
  Company Number: US-AMGEN-QUU351590

PATIENT
  Sex: Male
  Weight: 111.7 kg

DRUGS (7)
  1. ENBREL [Suspect]
     Indication: RHEUMATOID ARTHRITIS
     Route: 058
     Dates: start: 20040609
  2. METHOTREXATE [Concomitant]
     Dates: start: 19980113
  3. ZANTAC [Concomitant]
  4. FOLIC ACID [Concomitant]
  5. HYDROCHLOROTHIAZIDE [Concomitant]
  6. ACTONEL [Concomitant]
  7. VITAMIN D [Concomitant]
     Dates: start: 20080101

REACTIONS (1)
  - SQUAMOUS CELL CARCINOMA OF SKIN [None]
